FAERS Safety Report 12529683 (Version 3)
Quarter: 2016Q3

REPORT INFORMATION
  Report Type: Spontaneous
  Country: US (occurrence: US)
  Receive Date: 20160706
  Receipt Date: 20160808
  Transmission Date: 20161109
  Serious: No
  Sender: FDA-Public Use
  Company Number: US-BEH-2016057568

PATIENT
  Age: 54 Year
  Sex: Female
  Weight: 98 kg

DRUGS (36)
  1. ACETAMINOPHEN. [Concomitant]
     Active Substance: ACETAMINOPHEN
  2. DIPHENHYDRAMINE. [Concomitant]
     Active Substance: DIPHENHYDRAMINE
  3. HIZENTRA [Suspect]
     Active Substance: HUMAN IMMUNOGLOBULIN G
     Route: 058
  4. EPIPEN [Concomitant]
     Active Substance: EPINEPHRINE
  5. ERYTHROMYCIN. [Concomitant]
     Active Substance: ERYTHROMYCIN
  6. SULFSALAZINE [Concomitant]
  7. ASTELIN [Concomitant]
     Active Substance: AZELASTINE HYDROCHLORIDE
  8. LASIX [Concomitant]
     Active Substance: FUROSEMIDE
  9. LOSARTAN. [Concomitant]
     Active Substance: LOSARTAN
  10. FLONASE [Concomitant]
     Active Substance: FLUTICASONE PROPIONATE
  11. HIZENTRA [Suspect]
     Active Substance: HUMAN IMMUNOGLOBULIN G
     Route: 058
  12. HIZENTRA [Suspect]
     Active Substance: HUMAN IMMUNOGLOBULIN G
  13. BACTRIM [Concomitant]
     Active Substance: SULFAMETHOXAZOLE\TRIMETHOPRIM
  14. HYDROCHLORTHIAZIDE [Concomitant]
     Active Substance: HYDROCHLOROTHIAZIDE
  15. ATROVENT [Concomitant]
     Active Substance: IPRATROPIUM BROMIDE
  16. PRAVCHOL [Concomitant]
  17. CETIRIZINE [Concomitant]
     Active Substance: CETIRIZINE HYDROCHLORIDE
  18. HIZENTRA [Suspect]
     Active Substance: HUMAN IMMUNOGLOBULIN G
     Route: 058
  19. HIZENTRA [Suspect]
     Active Substance: HUMAN IMMUNOGLOBULIN G
     Route: 058
  20. GABPENTIN [Concomitant]
  21. ADVAIR HFA [Concomitant]
     Active Substance: FLUTICASONE PROPIONATE\SALMETEROL XINAFOATE
  22. LIDOCAINE/PRILOCAINE [Concomitant]
     Active Substance: LIDOCAINE\PRILOCAINE
  23. MUPIROCIN. [Concomitant]
     Active Substance: MUPIROCIN
  24. VORTEX [Concomitant]
     Active Substance: SODIUM FLUORIDE
  25. HIZENTRA [Suspect]
     Active Substance: HUMAN IMMUNOGLOBULIN G
     Route: 058
  26. MELOXICAM. [Concomitant]
     Active Substance: MELOXICAM
  27. SINGULAIR [Concomitant]
     Active Substance: MONTELUKAST SODIUM
  28. NEXIUM [Concomitant]
     Active Substance: ESOMEPRAZOLE MAGNESIUM
  29. FISH OIL [Concomitant]
     Active Substance: FISH OIL
  30. POTASSIUM [Concomitant]
     Active Substance: POTASSIUM
  31. HYDROXYCHLOROQUINE [Concomitant]
     Active Substance: HYDROXYCHLOROQUINE
  32. HIZENTRA [Suspect]
     Active Substance: HUMAN IMMUNOGLOBULIN G
     Indication: IMMUNODEFICIENCY COMMON VARIABLE
     Route: 058
  33. TRIAMCINOLONE [Concomitant]
     Active Substance: TRIAMCINOLONE
  34. PROVENTIL [Concomitant]
     Active Substance: ALBUTEROL
  35. OSCAL [Concomitant]
     Active Substance: CALCIUM CARBONATE
  36. PROZAC [Concomitant]
     Active Substance: FLUOXETINE HYDROCHLORIDE

REACTIONS (2)
  - Sinusitis [Unknown]
  - Candida infection [Unknown]

NARRATIVE: CASE EVENT DATE: 20151114
